FAERS Safety Report 5934419-4 (Version None)
Quarter: 2008Q4

REPORT INFORMATION
  Report Type: 
  Country: None (occurrence: None)
  Receive Date: 20081027
  Receipt Date: 20081021
  Transmission Date: 20090506
  Serious: Yes (Other)
  Sender: FDA-Public Use
  Company Number: PTA2008000013

PATIENT
  Age: 68 Year
  Sex: Male
  Weight: 80 kg

DRUGS (2)
  1. CARBOPLATIN [Suspect]
     Indication: BRONCHIAL CARCINOMA
     Dosage: INTRAVENOUS
     Route: 042
     Dates: start: 20080903
  2. TAXOL [Suspect]

REACTIONS (3)
  - ABDOMINAL TENDERNESS [None]
  - ANAPHYLACTIC REACTION [None]
  - PARAESTHESIA [None]
